FAERS Safety Report 23344350 (Version 2)
Quarter: 2024Q4

REPORT INFORMATION
  Report Type: Report from Study
  Country: DE (occurrence: DE)
  Receive Date: 20231228
  Receipt Date: 20241110
  Transmission Date: 20250115
  Serious: Yes (Hospitalization, Other)
  Sender: ABBVIE
  Company Number: DE-ABBVIE-5554610

PATIENT
  Age: 58 Year
  Sex: Female
  Weight: 57 kg

DRUGS (1)
  1. HUMIRA [Suspect]
     Active Substance: ADALIMUMAB
     Indication: Psoriatic arthropathy
     Dosage: FORM STRENGTH: 40  MILLIGRAM
     Route: 058
     Dates: start: 20100115, end: 202303

REACTIONS (6)
  - Fibula fracture [Recovered/Resolved]
  - Blood pressure increased [Not Recovered/Not Resolved]
  - Wound secretion [Recovered/Resolved]
  - Fungal infection [Recovering/Resolving]
  - Ankle fracture [Recovered/Resolved]
  - Ankle operation [Recovered/Resolved]

NARRATIVE: CASE EVENT DATE: 20130101
